FAERS Safety Report 4735070-4 (Version None)
Quarter: 2005Q3

REPORT INFORMATION
  Report Type: 
  Country: None (occurrence: None)
  Receive Date: 20050804
  Receipt Date: 20050719
  Transmission Date: 20060218
  Serious: Yes (Hospitalization, Other)
  Sender: FDA-Public Use
  Company Number: US_000336703

PATIENT
  Age: 31 Year
  Sex: Male
  Weight: 108 kg

DRUGS (3)
  1. HUMULIN N [Suspect]
     Indication: DIABETES MELLITUS
     Dates: start: 19880101, end: 19880101
  2. HUMULIN R [Suspect]
     Indication: DIABETES MELLITUS
     Dates: start: 19880101, end: 19880101
  3. GLUCOPHAGE [Concomitant]

REACTIONS (4)
  - ANAPHYLACTIC SHOCK [None]
  - BLOOD GLUCOSE FLUCTUATION [None]
  - HYPOGLYCAEMIA [None]
  - ROAD TRAFFIC ACCIDENT [None]
